FAERS Safety Report 10890642 (Version 2)
Quarter: 2015Q2

REPORT INFORMATION
  Report Type: Spontaneous
  Country: GB (occurrence: GB)
  Receive Date: 20150305
  Receipt Date: 20150420
  Transmission Date: 20150821
  Serious: Yes (Death, Other)
  Sender: FDA-Public Use
  Company Number: GB-NOVOPROD-440549

PATIENT
  Sex: Male

DRUGS (1)
  1. NOVOMIX 30 FLEXPEN [Suspect]
     Active Substance: INSULIN ASPART
     Indication: PRODUCT USED FOR UNKNOWN INDICATION
     Dosage: 20 UNITS TAKEN AM
     Route: 065
     Dates: start: 201407

REACTIONS (4)
  - Vomiting [Not Recovered/Not Resolved]
  - Death [Fatal]
  - Feeding disorder [Not Recovered/Not Resolved]
  - Malignant neoplasm progression [Unknown]

NARRATIVE: CASE EVENT DATE: 201502
